FAERS Safety Report 17895668 (Version 1)
Quarter: 2020Q2

REPORT INFORMATION
  Report Type: Spontaneous
  Country: NL (occurrence: FR)
  Receive Date: 20200615
  Receipt Date: 20200615
  Transmission Date: 20200714
  Serious: Yes (Other)
  Sender: FDA-Public Use
  Company Number: FR-FRESENIUS KABI-FK202005608

PATIENT
  Age: 59 Year
  Sex: Female
  Weight: 97 kg

DRUGS (3)
  1. LINEZOLID KABI [Suspect]
     Active Substance: LINEZOLID
     Indication: SUPERINFECTION BACTERIAL
     Dosage: 1200 MG DAILY
     Route: 042
     Dates: start: 20200306, end: 20200312
  2. ERYTHROMYCIN LACTOBIONATE [Suspect]
     Active Substance: ERYTHROMYCIN LACTOBIONATE
     Indication: SUPERINFECTION BACTERIAL
     Dosage: 250 MG DAILY
     Route: 042
     Dates: start: 20200308, end: 20200310
  3. CEFOTAXIME [Suspect]
     Active Substance: CEFOTAXIME SODIUM
     Indication: SUPERINFECTION BACTERIAL
     Dosage: 6 G DAILY
     Route: 042
     Dates: start: 20200306, end: 20200313

REACTIONS (2)
  - Hepatocellular injury [Recovering/Resolving]
  - Gamma-glutamyltransferase increased [Recovering/Resolving]

NARRATIVE: CASE EVENT DATE: 20200309
